FAERS Safety Report 19728832 (Version 1)
Quarter: 2021Q3

REPORT INFORMATION
  Report Type: Spontaneous
  Country: AR (occurrence: AR)
  Receive Date: 20210820
  Receipt Date: 20210820
  Transmission Date: 20211014
  Serious: Yes (Hospitalization, Other)
  Sender: FDA-Public Use
  Company Number: AR-PFIZER INC-202101035235

PATIENT
  Age: 80 Year
  Sex: Male

DRUGS (1)
  1. BOSUTINIB [Suspect]
     Active Substance: BOSUTINIB
     Indication: CHRONIC MYELOID LEUKAEMIA
     Dosage: 500 MG, DAILY
     Dates: start: 20210709, end: 20210809

REACTIONS (3)
  - Neoplasm progression [Unknown]
  - Arrhythmia [Unknown]
  - Chest pain [Unknown]

NARRATIVE: CASE EVENT DATE: 20210724
